FAERS Safety Report 15592611 (Version 2)
Quarter: 2018Q4

REPORT INFORMATION
  Report Type: Report from Study
  Country: US (occurrence: US)
  Receive Date: 20181107
  Receipt Date: 20181213
  Transmission Date: 20190205
  Serious: Yes (Hospitalization)
  Sender: FDA-Public Use
  Company Number: US-BAYER-2018-150966

PATIENT
  Age: 85 Year
  Sex: Male

DRUGS (1)
  1. XOFIGO [Suspect]
     Active Substance: RADIUM RA-223 DICHLORIDE
     Indication: HORMONE-REFRACTORY PROSTATE CANCER
     Dosage: UNK
     Dates: start: 20180711, end: 20180711

REACTIONS (4)
  - Cardiac failure congestive [None]
  - Physical deconditioning [None]
  - Transient ischaemic attack [Unknown]
  - Catheterisation cardiac [None]

NARRATIVE: CASE EVENT DATE: 20180808
